FAERS Safety Report 26099516 (Version 2)
Quarter: 2025Q4

REPORT INFORMATION
  Report Type: Spontaneous
  Country: EU (occurrence: EU)
  Receive Date: 20251128
  Receipt Date: 20251216
  Transmission Date: 20260117
  Serious: Yes (Other)
  Sender: AMGEN
  Company Number: EU-AMGEN-HUNSP2025235236

PATIENT
  Age: 52 Year
  Sex: Female

DRUGS (1)
  1. NPLATE [Suspect]
     Active Substance: ROMIPLOSTIM
     Indication: Product used for unknown indication
     Dosage: 4 MICROGRAM/KILOGRAM
     Route: 065

REACTIONS (1)
  - Subclavian vein thrombosis [Unknown]

NARRATIVE: CASE EVENT DATE: 20210101
